FAERS Safety Report 11498311 (Version 3)
Quarter: 2015Q4

REPORT INFORMATION
  Report Type: Spontaneous
  Country: FR (occurrence: FR)
  Receive Date: 20150911
  Receipt Date: 20151231
  Transmission Date: 20160304
  Serious: Yes (Life-Threatening, Hospitalization, Other)
  Sender: FDA-Public Use
  Company Number: FR-ASTRAZENECA-2015SE86974

PATIENT
  Age: 25837 Day
  Sex: Male

DRUGS (21)
  1. FLUTICASONE [Concomitant]
     Active Substance: FLUTICASONE\FLUTICASONE PROPIONATE
     Indication: SINUSITIS
     Dates: start: 20150707
  2. BRILIQUE [Suspect]
     Active Substance: TICAGRELOR
     Route: 048
     Dates: start: 20150726, end: 20150811
  3. PRISTINAMYCIN [Concomitant]
     Active Substance: PRISTINAMYCIN
     Indication: SINUSITIS
     Dates: start: 20150707
  4. LASILIX [Suspect]
     Active Substance: FUROSEMIDE
     Route: 048
     Dates: start: 20150728, end: 20150809
  5. PREDNISOLONE. [Concomitant]
     Active Substance: PREDNISOLONE
     Indication: SINUSITIS
     Dates: start: 20150707
  6. SOLUDACTONE [Concomitant]
     Active Substance: CANRENOATE POTASSIUM
     Dosage: DAILY
     Dates: start: 20150726, end: 20150727
  7. TRIATEC [Suspect]
     Active Substance: RAMIPRIL
     Route: 048
     Dates: start: 20150726, end: 20150809
  8. CARDENSIEL [Suspect]
     Active Substance: BISOPROLOL FUMARATE
     Route: 048
     Dates: start: 20150728, end: 20150810
  9. PREVISCAN [Suspect]
     Active Substance: FLUINDIONE
     Route: 048
     Dates: start: 20150730, end: 20150805
  10. ALPRAZOLAM. [Suspect]
     Active Substance: ALPRAZOLAM
     Dosage: 0.25 MG , 1 OR 2 TABLETS DAILY
     Route: 048
     Dates: start: 20150726, end: 20150806
  11. LASILIX [Suspect]
     Active Substance: FUROSEMIDE
     Route: 042
     Dates: start: 20150726, end: 20150728
  12. SOLUDACTONE [Concomitant]
     Active Substance: CANRENOATE POTASSIUM
     Dosage: ONCE/SINGLE ADMINISTRATION
     Dates: start: 20150808, end: 20150808
  13. CORDARONE [Suspect]
     Active Substance: AMIODARONE HYDROCHLORIDE
     Route: 042
     Dates: start: 20150814, end: 20150817
  14. DIGOXINE [Concomitant]
     Active Substance: DIGOXIN
     Dates: start: 20150727, end: 20150729
  15. KARDEGIC [Suspect]
     Active Substance: ASPIRIN LYSINE
     Route: 048
     Dates: start: 20150726
  16. CORDARONE [Suspect]
     Active Substance: AMIODARONE HYDROCHLORIDE
     Route: 048
     Dates: start: 20150730, end: 20150811
  17. AUGMENTIN [Suspect]
     Active Substance: AMOXICILLIN\CLAVULANATE POTASSIUM
     Route: 048
     Dates: start: 20150727, end: 20150810
  18. PANTOPRAZOLE [Suspect]
     Active Substance: PANTOPRAZOLE SODIUM
     Route: 042
     Dates: start: 20150727, end: 20150811
  19. SPIRONOLACTONE. [Suspect]
     Active Substance: SPIRONOLACTONE
     Route: 048
     Dates: start: 20150728, end: 20150808
  20. IVABRADINE [Concomitant]
     Active Substance: IVABRADINE
     Dates: start: 20150808, end: 20150809
  21. DOBUTAMINE [Concomitant]
     Active Substance: DOBUTAMINE\DOBUTAMINE HYDROCHLORIDE
     Dates: start: 20150812, end: 20150813

REACTIONS (7)
  - Interstitial lung disease [Recovering/Resolving]
  - Septic shock [Unknown]
  - Lung adenocarcinoma [Unknown]
  - Cardio-respiratory arrest [Unknown]
  - Ventricular tachycardia [Unknown]
  - Acute respiratory failure [Unknown]
  - Pleural effusion [Unknown]

NARRATIVE: CASE EVENT DATE: 20150808
